FAERS Safety Report 8493538-1 (Version None)
Quarter: 2012Q3

REPORT INFORMATION
  Report Type: 
  Country: None (occurrence: None)
  Receive Date: 20120706
  Receipt Date: 20120626
  Transmission Date: 20120928
  Serious: Yes (Other)
  Sender: FDA-Public Use
  Company Number: US-B.I. PHARMACEUTICALS,INC./RIDGEFIELD-2012-EU-03320GD

PATIENT
  Sex: Male

DRUGS (3)
  1. PRAMIPEXOLE DIHYCHLORIDE [Suspect]
     Indication: PARKINSON'S DISEASE
  2. RASAGILINE [Suspect]
     Indication: PARKINSON'S DISEASE
  3. CARBIDOPA AND LEVODOPA [Suspect]
     Indication: PARKINSON'S DISEASE

REACTIONS (8)
  - SOMNOLENCE [None]
  - HALLUCINATION, TACTILE [None]
  - ORTHOSTATIC HYPOTENSION [None]
  - ON AND OFF PHENOMENON [None]
  - FREEZING PHENOMENON [None]
  - GAIT DISTURBANCE [None]
  - FALL [None]
  - DYSKINESIA [None]
